FAERS Safety Report 7448605-8 (Version None)
Quarter: 2011Q2

REPORT INFORMATION
  Report Type: 
  Country: None (occurrence: None)
  Receive Date: 20110429
  Receipt Date: 20100809
  Transmission Date: 20111010
  Serious: No
  Sender: FDA-Public Use
  Company Number: US-ASTRAZENECA-2010SE23466

PATIENT
  Age: 48 Year
  Sex: Female
  Weight: 72.6 kg

DRUGS (6)
  1. ATENOLOL [Concomitant]
  2. PREVACID [Concomitant]
  3. COLACE [Concomitant]
  4. LISINOPRIL [Concomitant]
  5. NEXIUM [Suspect]
     Route: 048
     Dates: start: 20050101, end: 20100401
  6. ZANTAC [Concomitant]

REACTIONS (3)
  - DYSPEPSIA [None]
  - HAEMORRHAGE [None]
  - PRURITUS [None]
